FAERS Safety Report 17552940 (Version 2)
Quarter: 2020Q2

REPORT INFORMATION
  Report Type: Spontaneous
  Country: SG (occurrence: SG)
  Receive Date: 20200317
  Receipt Date: 20200401
  Transmission Date: 20200713
  Serious: Yes (Other)
  Sender: FDA-Public Use
  Company Number: NVSC2020SG074997

PATIENT
  Age: 20 Day
  Sex: Male

DRUGS (2)
  1. OCTREOTIDE. [Suspect]
     Active Substance: OCTREOTIDE
     Indication: CHYLOTHORAX
     Dosage: STARTED ON DAY 5 AT 1 UG/KG/HOUR
     Route: 065
     Dates: start: 20180411, end: 20180426
  2. OCTREOTIDE. [Suspect]
     Active Substance: OCTREOTIDE
     Dosage: 9 UG/KG/HOUR OVER THE NEXT 9 DAYS
     Route: 065

REACTIONS (5)
  - Abdominal distension [Recovered/Resolved]
  - Necrotising colitis [Recovered/Resolved]
  - Pneumatosis intestinalis [Recovered/Resolved]
  - Product use in unapproved indication [Unknown]
  - Haematochezia [Recovered/Resolved]

NARRATIVE: CASE EVENT DATE: 20180427
